FAERS Safety Report 18559044 (Version 2)
Quarter: 2020Q4

REPORT INFORMATION
  Report Type: Spontaneous
  Country: NL (occurrence: NL)
  Receive Date: 20201130
  Receipt Date: 20201204
  Transmission Date: 20210114
  Serious: Yes (Disabling)
  Sender: FDA-Public Use
  Company Number: NL-TEVA-2020-NL-1852666

PATIENT
  Age: 61 Year
  Sex: Male
  Weight: 129 kg

DRUGS (18)
  1. ALISKIREN TABLET 300MG / RASILEZ TABLET FILMOMHULD 300MG [Concomitant]
     Dosage: THERAPY START DATE ASKU, THERAPY END  DATE ASKU
  2. GLICLAZIDE TABLET MGA 30MG / BRAND NAME NOT SPECIFIED [Concomitant]
     Dosage: THERAPY START DATE ASKU, THERAPY END  DATE ASKU
  3. METFORMINE TABLET   500MG / BRAND NAME NOT SPECIFIED [Concomitant]
     Active Substance: METFORMIN HYDROCHLORIDE
     Dosage: THERAPY START DATE ASKU, THERAPY END  DATE ASKU
  4. PAROXETINE TABLET 20MG / BRAND NAME NOT SPECIFIED [Concomitant]
     Dosage: THERAPY START DATE ASKU, THERAPY END  DATE ASKU
  5. FLECAINIDE TABLET 100MG / BRAND NAME NOT SPECIFIED [Concomitant]
     Dosage: THERAPY START DATE ASKU, THERAPY END  DATE ASKU
  6. ALLOPURINOL TABLET 100MG / BRAND NAME NOT SPECIFIED [Concomitant]
     Dosage: THERAPY START DATE ASKU, THERAPY END DATE ASKU
  7. ACENOCOUMAROL TABLET 1MG / BRAND NAME NOT SPECIFIED [Concomitant]
     Active Substance: ACENOCOUMAROL
     Dosage: THERAPY START DATE ASKU, THERAPY END  DATE ASKU
  8. FLUTICASON-FUROAAT NEUSSPRAY 27,5UG/DO / AVAMYS NEUSSPRAY 27,5MCG/DO F [Concomitant]
     Active Substance: FLUTICASONE
     Dosage: THERAPY START DATE ASKU, THERAPY END  DATE ASKU
  9. FUROSEMIDE TABLET 40MG / BRAND NAME NOT SPECIFIED [Concomitant]
     Dosage: THERAPY START DATE ASKU, THERAPY END  DATE ASKU
  10. CALCIUMCARB/COLECALC KAUWTB 1,25G/800IE (500MG CA) / CALCI CHEW D3 KAU [Concomitant]
     Dosage: THERAPY START DATE ASKU, THERAPY END  DATE ASKU
  11. ATORVASTATINE TABLET 20MG / BRAND NAME NOT SPECIFIED [Concomitant]
     Active Substance: ATORVASTATIN
     Dosage: THERAPY START DATE ASKU, THERAPY END  DATE ASKU
  12. AMITRIPTYLINE HCL TABLET 10MG / BRAND NAME NOT SPECIFIED [Concomitant]
     Dosage: THERAPY START DATE ASKU, THERAPY END  DATE ASKU
  13. VERAPAMIL TABLET MGA 240MG / BRAND NAME NOT SPECIFIED [Concomitant]
     Dosage: THERAPY START DATE ASKU, THERAPY END  DATE ASKU
  14. PREDNISOLON / BRAND NAME NOT SPECIFIED [Suspect]
     Active Substance: PREDNISOLONE
     Indication: SARCOIDOSIS
     Dosage: TABLET FROM 5 MG TO 50 MG
     Dates: start: 198606, end: 20180601
  15. MACROGOL/ZOUTEN DRANK / BRAND NAME NOT SPECIFIED [Concomitant]
     Dosage: THERAPY START DATE ASKU, THERAPY END  DATE ASKU
  16. TRAMADOL TABLET MGA 300MG / TRAMAGETIC ONCE DAILY TABLET MGA 300MG [Concomitant]
     Dosage: THERAPY START DATE ASKU, THERAPY END  DATE ASKU
  17. FOLIUMZUUR TABLET 5MG / BRAND NAME NOT SPECIFIED [Concomitant]
     Dosage: THERAPY START DATE ASKU, THERAPY END  DATE ASKU
  18. BARNIDIPINE CAPSULE MGA 20MG / VASEXTEN CAPSULE MGA 20MG [Concomitant]
     Dosage: THERAPY START DATE ASKU, THERAPY END  DATE ASKU

REACTIONS (3)
  - Fatigue [Not Recovered/Not Resolved]
  - Myalgia [Not Recovered/Not Resolved]
  - General physical health deterioration [Not Recovered/Not Resolved]

NARRATIVE: CASE EVENT DATE: 20190701
